FAERS Safety Report 15796717 (Version 2)
Quarter: 2019Q1

REPORT INFORMATION
  Report Type: Report from Study
  Country: None (occurrence: CA)
  Receive Date: 20190108
  Receipt Date: 20190304
  Transmission Date: 20190417
  Serious: Yes (Hospitalization, Other)
  Sender: FDA-Public Use
  Company Number: CA-ABBVIE-19S-028-2611315-00

PATIENT
  Age: 47 Year
  Sex: Female
  Weight: 76 kg

DRUGS (2)
  1. LUPRON DEPOT [Suspect]
     Active Substance: LEUPROLIDE ACETATE
     Indication: MENORRHAGIA
     Route: 030
     Dates: start: 20180504, end: 20181022
  2. IRON [Concomitant]
     Active Substance: IRON
     Indication: MINERAL SUPPLEMENTATION

REACTIONS (2)
  - Anaemia [Recovering/Resolving]
  - Uterine leiomyoma [Recovering/Resolving]

NARRATIVE: CASE EVENT DATE: 20190117
